FAERS Safety Report 14755311 (Version 1)
Quarter: 2018Q2

REPORT INFORMATION
  Report Type: Spontaneous
  Country: US (occurrence: US)
  Receive Date: 20180413
  Receipt Date: 20180413
  Transmission Date: 20180711
  Serious: No
  Sender: FDA-Public Use
  Company Number: US-BION-006075

PATIENT
  Age: 79 Year
  Sex: Female
  Weight: 72 kg

DRUGS (5)
  1. ALEVE [Suspect]
     Active Substance: NAPROXEN SODIUM
     Indication: PAIN
     Dosage: 1 OR 2 DF, QD
     Dates: start: 20170123, end: 20170131
  2. CALCIUM CARBONATE/COLECALCIFEROL [Concomitant]
  3. CHONDROITIN/GLUCOSAMINE [Concomitant]
  4. ASCORBIC ACID/RETINOL/TOCOPHEROL [Concomitant]
     Dosage: VITAMINS
  5. COLECALCIFEROL [Concomitant]
     Active Substance: CHOLECALCIFEROL

REACTIONS (1)
  - Drug effect incomplete [Not Recovered/Not Resolved]

NARRATIVE: CASE EVENT DATE: 20170123
